FAERS Safety Report 8044421 (Version 6)
Quarter: 2014Q1

REPORT INFORMATION
  Report Type: Spontaneous
  Country: US (occurrence: US)
  Receive Date: 20110719
  Receipt Date: 20140107
  Transmission Date: 20141002
  Serious: Yes (Hospitalization, Other)
  Sender: FDA-Public Use
  Company Number: US-ASTRAZENECA-2011SE41519

PATIENT
  Age: 51 Year
  Sex: Female
  Weight: 95.3 kg

DRUGS (19)
  1. NEXIUM [Suspect]
     Indication: GASTROOESOPHAGEAL REFLUX DISEASE
     Route: 048
     Dates: start: 200709, end: 201005
  2. NEXIUM [Suspect]
     Indication: GASTROOESOPHAGEAL REFLUX DISEASE
     Route: 048
     Dates: start: 20080626
  3. NEXIUM [Suspect]
     Indication: GASTROOESOPHAGEAL REFLUX DISEASE
     Route: 048
     Dates: start: 20090611
  4. NEXIUM [Suspect]
     Indication: GASTROOESOPHAGEAL REFLUX DISEASE
     Route: 048
     Dates: start: 20090611
  5. PRILOSEC [Suspect]
     Route: 048
     Dates: start: 20080412
  6. PREVACID [Concomitant]
     Dates: start: 20041006
  7. PROTONIX [Concomitant]
     Dates: start: 20050331
  8. PEPCID [Concomitant]
  9. MYCARDIS [Concomitant]
     Indication: BLOOD PRESSURE ABNORMAL
  10. LEVOTHYROXINE [Concomitant]
     Indication: HYPERTHYROIDISM
  11. PHENYTEK [Concomitant]
     Indication: EPILEPSY
     Route: 048
     Dates: start: 20090613
  12. PHENYTEK [Concomitant]
     Indication: EPILEPSY
  13. DIAZEPAM [Concomitant]
     Indication: ANXIETY
     Dates: start: 2005
  14. DIAZEPAM [Concomitant]
     Indication: ANXIETY
     Route: 048
     Dates: start: 20090610
  15. FUROSEMIDE [Concomitant]
     Dates: start: 20090611
  16. ZOLPIDEM TARTRATE [Concomitant]
     Route: 048
     Dates: start: 20090611
  17. DIOVAN [Concomitant]
     Route: 048
     Dates: start: 20090610
  18. LORTAB [Concomitant]
     Route: 048
     Dates: start: 20090610
  19. KEFLOX [Concomitant]
     Dates: start: 20090611

REACTIONS (9)
  - Convulsion [Unknown]
  - Radius fracture [Unknown]
  - Upper limb fracture [Unknown]
  - Ulna fracture [Unknown]
  - Osteoporosis [Unknown]
  - Foot fracture [Unknown]
  - Periarticular disorder [Unknown]
  - Hypothyroidism [Unknown]
  - Impaired healing [Unknown]
